FAERS Safety Report 7328283-9 (Version None)
Quarter: 2011Q1

REPORT INFORMATION
  Report Type: 
  Country: None (occurrence: None)
  Receive Date: 20110223
  Receipt Date: 20110210
  Transmission Date: 20110831
  Serious: Yes (Other)
  Sender: FDA-Public Use
  Company Number: 2011S1000092

PATIENT
  Age: 81 Year
  Sex: Female

DRUGS (3)
  1. LIVALO [Suspect]
     Indication: HYPERCHOLESTEROLAEMIA
     Dosage: 1 MG;1X;PO
     Route: 048
     Dates: start: 20101206, end: 20110107
  2. BLOPRESS [Concomitant]
  3. MARZULENE-S [Concomitant]

REACTIONS (2)
  - TINNITUS [None]
  - TYMPANIC MEMBRANE PERFORATION [None]
